FAERS Safety Report 9557651 (Version 3)
Quarter: 2013Q4

REPORT INFORMATION
  Report Type: Spontaneous
  Country: CA (occurrence: CA)
  Receive Date: 20130926
  Receipt Date: 20131025
  Transmission Date: 20140711
  Serious: Yes (Death, Hospitalization)
  Sender: FDA-Public Use
  Company Number: CA-B.I. PHARMACEUTICALS,INC./RIDGEFIELD-2013-CN-01592CN

PATIENT
  Age: 82 Year
  Sex: Female

DRUGS (4)
  1. PRADAXA [Suspect]
     Indication: ATRIAL FIBRILLATION
     Dosage: 220 MG
     Dates: start: 201309, end: 201309
  2. MICARDIS [Concomitant]
  3. CARVEDILOL [Concomitant]
  4. METFORMIN [Concomitant]

REACTIONS (3)
  - Haemorrhagic stroke [Fatal]
  - Ischaemic stroke [Unknown]
  - Gastrooesophageal reflux disease [Unknown]
